FAERS Safety Report 8032798-8 (Version None)
Quarter: 2012Q1

REPORT INFORMATION
  Report Type: 
  Country: None (occurrence: None)
  Receive Date: 20120110
  Receipt Date: 20111230
  Transmission Date: 20120608
  Serious: Yes (Life-Threatening)
  Sender: FDA-Public Use
  Company Number: IT-PFIZER INC-2012005826

PATIENT
  Age: 85 Year
  Sex: Female

DRUGS (4)
  1. CARVEDILOL [Concomitant]
     Dosage: UNK
     Route: 065
  2. FUROSEMIDE [Concomitant]
     Dosage: UNK
     Route: 065
  3. ALDACTONE [Suspect]
     Indication: CARDIAC FAILURE
     Dosage: 200 MG, DAILY
     Route: 048
     Dates: start: 20110304, end: 20110715
  4. OLMESARTAN MEDOXOMIL [Suspect]
     Indication: CARDIAC FAILURE
     Dosage: 20 MG, DAILY
     Route: 048
     Dates: start: 20110304, end: 20110715

REACTIONS (2)
  - BRADYCARDIA [None]
  - CARDIAC ARREST [None]
